FAERS Safety Report 19501490 (Version 1)
Quarter: 2021Q3

REPORT INFORMATION
  Report Type: Spontaneous
  Country: US (occurrence: US)
  Receive Date: 20210707
  Receipt Date: 20210707
  Transmission Date: 20211014
  Serious: Yes (Other)
  Sender: FDA-Public Use
  Company Number: US-ROCHE-2859945

PATIENT
  Age: 60 Year
  Sex: Female
  Weight: 72.64 kg

DRUGS (3)
  1. TYLENOL [Concomitant]
     Active Substance: ACETAMINOPHEN
     Indication: PREMEDICATION
  2. OCREVUS [Suspect]
     Active Substance: OCRELIZUMAB
     Indication: SECONDARY PROGRESSIVE MULTIPLE SCLEROSIS
     Route: 042
     Dates: start: 2017
  3. SOLU?MEDROL [Concomitant]
     Active Substance: METHYLPREDNISOLONE SODIUM SUCCINATE

REACTIONS (5)
  - Lethargy [Recovering/Resolving]
  - Product use issue [Unknown]
  - Asthenia [Recovering/Resolving]
  - Fatigue [Recovering/Resolving]
  - Depressed level of consciousness [Recovering/Resolving]

NARRATIVE: CASE EVENT DATE: 20210623
